FAERS Safety Report 6078167-1 (Version None)
Quarter: 2009Q1

REPORT INFORMATION
  Report Type: 
  Country: None (occurrence: None)
  Receive Date: 20090213
  Receipt Date: 20090211
  Transmission Date: 20090719
  Serious: Yes (Death)
  Sender: FDA-Public Use
  Company Number: CA-B.I. PHARMACEUTICALS,INC./RIDGEFIELD-2009-CN-00083CN

PATIENT
  Sex: Male

DRUGS (4)
  1. CATAPRES [Suspect]
     Indication: PAIN MANAGEMENT
     Route: 037
     Dates: start: 20090113, end: 20090201
  2. HYDROMORPHONE HCL [Concomitant]
     Indication: PAIN MANAGEMENT
     Dosage: 50MG
     Route: 058
  3. MORPHINE [Concomitant]
     Indication: PAIN MANAGEMENT
     Route: 037
     Dates: start: 20090113, end: 20090201
  4. BUPIVACAINE [Concomitant]
     Indication: PAIN MANAGEMENT
     Route: 037
     Dates: start: 20090113, end: 20090201

REACTIONS (2)
  - ACUTE RESPIRATORY FAILURE [None]
  - PNEUMONIA [None]
